FAERS Safety Report 10647981 (Version 3)
Quarter: 2015Q2

REPORT INFORMATION
  Report Type: Spontaneous
  Country: US (occurrence: US)
  Receive Date: 20141212
  Receipt Date: 20150505
  Transmission Date: 20150821
  Serious: No
  Sender: FDA-Public Use
  Company Number: US-BIOGENIDEC-2014BI129170

PATIENT
  Age: 60 Year
  Sex: Female

DRUGS (17)
  1. FLAXSEED [Concomitant]
     Active Substance: FLAX SEED
  2. LEVOTHYROXINE SODIUM. [Concomitant]
     Active Substance: LEVOTHYROXINE SODIUM
  3. WELCHOL [Concomitant]
     Active Substance: COLESEVELAM HYDROCHLORIDE
  4. HYDROCODONE BITARTRATE AND ACETAMINOPHEN [Concomitant]
     Active Substance: ACETAMINOPHEN\HYDROCODONE BITARTRATE
  5. NABUMETONE. [Concomitant]
     Active Substance: NABUMETONE
  6. COPAXONE [Concomitant]
     Active Substance: GLATIRAMER ACETATE
  7. BACLOFEN. [Concomitant]
     Active Substance: BACLOFEN
  8. AMLODIPINE BESYLATE. [Concomitant]
     Active Substance: AMLODIPINE BESYLATE
  9. VITAMIN C [Concomitant]
     Active Substance: ASCORBIC ACID
  10. TECFIDERA [Suspect]
     Active Substance: DIMETHYL FUMARATE
     Indication: MULTIPLE SCLEROSIS
     Dates: start: 20140501
  11. OMEGA 3 [Concomitant]
     Active Substance: OMEGA-3 FATTY ACIDS
  12. VITAMIN D [Concomitant]
     Active Substance: CHOLECALCIFEROL
  13. CRANBERRY. [Concomitant]
     Active Substance: CRANBERRY
  14. TECFIDERA [Suspect]
     Active Substance: DIMETHYL FUMARATE
     Indication: MULTIPLE SCLEROSIS
     Route: 048
     Dates: start: 20140710
  15. PANTOPRAZOLE SODIUM [Concomitant]
  16. PAPAYA ENZYME [Concomitant]
  17. RESTASIS [Concomitant]
     Active Substance: CYCLOSPORINE

REACTIONS (7)
  - Feeling hot [Not Recovered/Not Resolved]
  - Paraesthesia [Unknown]
  - Band sensation [Not Recovered/Not Resolved]
  - Feeling abnormal [Not Recovered/Not Resolved]
  - Hot flush [Recovered/Resolved]
  - Formication [Not Recovered/Not Resolved]
  - Flushing [Not Recovered/Not Resolved]

NARRATIVE: CASE EVENT DATE: 20141203
